FAERS Safety Report 5440657-X (Version None)
Quarter: 2007Q3

REPORT INFORMATION
  Report Type: 
  Country: None (occurrence: None)
  Receive Date: 20070831
  Receipt Date: 20070810
  Transmission Date: 20080115
  Serious: No
  Sender: FDA-Public Use
  Company Number: US-BOEHRINGER INGELHEIM PHARMACEUTICALS, INC.-2007-BP-06933BP

PATIENT
  Sex: Female

DRUGS (9)
  1. SPIRIVA [Suspect]
     Indication: EMPHYSEMA
     Route: 055
     Dates: start: 20070510
  2. SPIRIVA [Suspect]
     Indication: CHRONIC OBSTRUCTIVE PULMONARY DISEASE
  3. ADVAIR DISKUS 100/50 [Concomitant]
  4. HIGH BLOOD PRESSURE MED [Concomitant]
  5. LANOXIN [Concomitant]
  6. ALBUTEROL [Concomitant]
     Indication: DYSPNOEA
  7. DILTIAZEM [Concomitant]
     Indication: HYPERTENSION
  8. LISINOPRIL [Concomitant]
  9. OXYGEN [Concomitant]
     Indication: DYSPNOEA

REACTIONS (1)
  - THERAPEUTIC RESPONSE DECREASED [None]
